FAERS Safety Report 23741645 (Version 1)
Quarter: 2024Q2

REPORT INFORMATION
  Report Type: Spontaneous
  Country: US (occurrence: US)
  Receive Date: 20240415
  Receipt Date: 20240415
  Transmission Date: 20240715
  Serious: Yes (Disabling, Other)
  Sender: FDA-Public Use
  Company Number: US-ASTELLAS-2023US031649

PATIENT
  Sex: Female

DRUGS (7)
  1. LEXISCAN [Suspect]
     Active Substance: REGADENOSON
     Indication: Cardiac stress test
     Dosage: 0.4MG/5ML, OTHER (SINGLE DOSE)
     Route: 065
     Dates: start: 202302, end: 202302
  2. LEXISCAN [Suspect]
     Active Substance: REGADENOSON
     Indication: Cardiac stress test
     Dosage: 0.4MG/5ML, OTHER (SINGLE DOSE)
     Route: 065
     Dates: start: 202302, end: 202302
  3. LEXISCAN [Suspect]
     Active Substance: REGADENOSON
     Indication: Cardiac stress test
     Dosage: 0.4MG/5ML, OTHER (SINGLE DOSE)
     Route: 065
     Dates: start: 202302, end: 202302
  4. LEXISCAN [Suspect]
     Active Substance: REGADENOSON
     Indication: Cardiac stress test
     Dosage: 0.4MG/5ML, OTHER (SINGLE DOSE)
     Route: 065
     Dates: start: 202302, end: 202302
  5. LISINOPRIL [Concomitant]
     Active Substance: LISINOPRIL
     Indication: Product used for unknown indication
     Dosage: UNK UNK, OTHER (EVERY DAY)
     Route: 065
  6. CARVEDILOL [Concomitant]
     Active Substance: CARVEDILOL
     Indication: Product used for unknown indication
     Dosage: UNK UNK, OTHER (EVERY DAY)
     Route: 065
  7. ASPIRIN [Concomitant]
     Active Substance: ASPIRIN
     Indication: Product used for unknown indication
     Dosage: UNK UNK, OTHER (EVERY DAY)
     Route: 065

REACTIONS (18)
  - Cerebrovascular accident [Unknown]
  - Headache [Unknown]
  - Abdominal pain upper [Unknown]
  - Gait disturbance [Unknown]
  - Dysstasia [Unknown]
  - Tremor [Unknown]
  - Blood pressure systolic decreased [Unknown]
  - Asthenia [Unknown]
  - Loss of personal independence in daily activities [Unknown]
  - Memory impairment [Unknown]
  - Aphasia [Unknown]
  - Hypoacusis [Unknown]
  - Ocular discomfort [Unknown]
  - Frustration tolerance decreased [Unknown]
  - Speech disorder [Unknown]
  - Feeling abnormal [Unknown]
  - Bradyphrenia [Unknown]
  - Post procedural complication [Unknown]

NARRATIVE: CASE EVENT DATE: 20230101
